FAERS Safety Report 19400993 (Version 1)
Quarter: 2021Q2

REPORT INFORMATION
  Report Type: Spontaneous
  Country: FR (occurrence: FR)
  Receive Date: 20210611
  Receipt Date: 20210611
  Transmission Date: 20210717
  Serious: Yes (Life-Threatening)
  Sender: FDA-Public Use
  Company Number: FR-ASTRAZENECA-2021A495257

PATIENT
  Age: 38 Year
  Sex: Female

DRUGS (4)
  1. BROMAZEPAM [Interacting]
     Active Substance: BROMAZEPAM
     Dosage: UNDEFINED QUANTITY
     Route: 048
  2. ZOPICLONE [Interacting]
     Active Substance: ZOPICLONE
     Dosage: 105 MG
     Route: 048
  3. QUETIAPINE XR [Suspect]
     Active Substance: QUETIAPINE
     Dosage: 48 G
     Route: 048
  4. VENLAFAXINE XR [Interacting]
     Active Substance: VENLAFAXINE HYDROCHLORIDE
     Dosage: 12 G
     Route: 048

REACTIONS (8)
  - Cardiotoxicity [Recovered/Resolved]
  - Intentional overdose [Recovered/Resolved]
  - Electrocardiogram QRS complex prolonged [Recovered/Resolved]
  - Blood pressure decreased [Recovered/Resolved]
  - Electrocardiogram QT prolonged [Recovered/Resolved]
  - Sinus tachycardia [Recovered/Resolved]
  - Drug-disease interaction [Recovered/Resolved]
  - Toxicity to various agents [Recovered/Resolved]
